FAERS Safety Report 5335269-2 (Version None)
Quarter: 2007Q2

REPORT INFORMATION
  Report Type: 
  Country: None (occurrence: None)
  Receive Date: 20070525
  Receipt Date: 20070514
  Transmission Date: 20071010
  Serious: Yes (Other)
  Sender: FDA-Public Use
  Company Number: AT-PFIZER INC-2007027013

PATIENT
  Sex: Male
  Weight: 73 kg

DRUGS (4)
  1. CHAMPIX [Suspect]
     Indication: SMOKING CESSATION THERAPY
     Route: 048
     Dates: start: 20070226, end: 20070101
  2. ACETYLSALICYLIC ACID SRT [Concomitant]
     Dosage: DAILY DOSE:100MG
  3. BUFLOMEDIL [Concomitant]
     Dosage: DAILY DOSE:600MG
  4. PARKEMED [Concomitant]
     Dosage: DAILY DOSE:500MG-FREQ:PRN

REACTIONS (9)
  - ABNORMAL DREAMS [None]
  - ATTENTION DEFICIT/HYPERACTIVITY DISORDER [None]
  - DIZZINESS [None]
  - HEADACHE [None]
  - MUSCLE SPASMS [None]
  - NAUSEA [None]
  - OEDEMA PERIPHERAL [None]
  - SPEECH DISORDER [None]
  - VERTIGO [None]
